FAERS Safety Report 6293865-2 (Version None)
Quarter: 2009Q3

REPORT INFORMATION
  Report Type: 
  Country: None (occurrence: None)
  Receive Date: 20090803
  Receipt Date: 20090728
  Transmission Date: 20100115
  Serious: No
  Sender: FDA-Public Use
  Company Number: US-B.I. PHARMACEUTICALS,INC./RIDGEFIELD-2009-BP-08905BP

PATIENT
  Sex: Female

DRUGS (3)
  1. ATROVENT HFA [Suspect]
     Indication: BRONCHITIS
     Dosage: 12 PUF
     Route: 055
     Dates: start: 20090724
  2. ATROVENT HFA [Suspect]
     Indication: RESPIRATORY TRACT INFECTION
  3. TYLENOL W/ CODEINE NO. 3 [Concomitant]
     Indication: ARTHRITIS

REACTIONS (2)
  - DRUG INEFFECTIVE [None]
  - INCORRECT ROUTE OF DRUG ADMINISTRATION [None]
